APPROVED DRUG PRODUCT: ERYTHROMYCIN STEARATE
Active Ingredient: ERYTHROMYCIN STEARATE
Strength: EQ 500MG BASE
Dosage Form/Route: TABLET;ORAL
Application: A063179 | Product #001
Applicant: ANI PHARMACEUTICALS INC
Approved: May 15, 1990 | RLD: No | RS: No | Type: DISCN